FAERS Safety Report 7909756-4 (Version None)
Quarter: 2011Q4

REPORT INFORMATION
  Report Type: 
  Country: None (occurrence: None)
  Receive Date: 20111111
  Receipt Date: 20111102
  Transmission Date: 20120403
  Serious: Yes (Life-Threatening, Hospitalization)
  Sender: FDA-Public Use
  Company Number: US-BAYER-201016614NA

PATIENT
  Age: 27 Year
  Sex: Female
  Weight: 126.98 kg

DRUGS (15)
  1. YASMIN [Suspect]
     Indication: ORAL CONTRACEPTION
     Route: 048
     Dates: start: 20071001, end: 20071201
  2. CITALOPRAM HYDROBROMIDE [Concomitant]
     Dosage: UNK
     Dates: start: 20080201
  3. ALBUTEROL [Concomitant]
  4. BUSPAR [Concomitant]
     Dosage: 10 MG, UNK
     Route: 048
  5. PREDNISONE TAB [Concomitant]
  6. PROTONIX [Concomitant]
  7. COUMADIN [Concomitant]
     Indication: PULMONARY EMBOLISM
  8. YAZ [Suspect]
     Indication: ORAL CONTRACEPTION
     Route: 048
     Dates: start: 20071001, end: 20071201
  9. NYQUIL [Concomitant]
     Indication: COUGH
     Dosage: UNK
     Dates: start: 20071215, end: 20071217
  10. SPIRIVA [Concomitant]
     Dosage: UNK
     Dates: start: 20080101, end: 20080401
  11. OMNIPAQUE 140 [Concomitant]
     Indication: UNEVALUABLE EVENT
     Dosage: UNK
     Route: 042
     Dates: start: 20070218, end: 20070218
  12. ALBUTEROL SULFATE [Concomitant]
     Dosage: UNK
     Dates: start: 20080101
  13. PREVACID [Concomitant]
     Dosage: UNK
     Dates: start: 20080101
  14. IRON [Concomitant]
     Dosage: UNK
     Dates: start: 20100101
  15. BUSPIRONE [Concomitant]
     Dosage: UNK
     Dates: start: 20080201

REACTIONS (8)
  - PULMONARY EMBOLISM [None]
  - RESPIRATORY FAILURE [None]
  - ANXIETY [None]
  - DEPRESSION [None]
  - PNEUMONIA [None]
  - TRACHEAL STENOSIS [None]
  - RENAL FAILURE [None]
  - RENAL TUBULAR NECROSIS [None]
